FAERS Safety Report 16088377 (Version 1)
Quarter: 2019Q1

REPORT INFORMATION
  Report Type: Report from Study
  Country: None (occurrence: TN)
  Receive Date: 20190319
  Receipt Date: 20190319
  Transmission Date: 20190418
  Serious: Yes (Hospitalization, Other)
  Sender: FDA-Public Use
  Company Number: TN-ABBVIE-19K-160-2705223-00

PATIENT
  Age: 60 Year
  Sex: Male

DRUGS (6)
  1. MECIR [Concomitant]
     Active Substance: TAMSULOSIN HYDROCHLORIDE
     Indication: PROSTATIC DISORDER
  2. AMLOR [Concomitant]
     Active Substance: AMLODIPINE BESYLATE
     Indication: HYPERTENSION
  3. HUMIRA [Suspect]
     Active Substance: ADALIMUMAB
     Dosage: 80 MG LOADING DOSE
     Route: 058
     Dates: start: 20181010, end: 20181010
  4. HUMIRA [Suspect]
     Active Substance: ADALIMUMAB
     Dosage: TREATMENT UNAVAILABLITY
     Route: 058
     Dates: start: 20181025, end: 20190116
  5. HUMIRA [Suspect]
     Active Substance: ADALIMUMAB
     Indication: CROHN^S DISEASE
     Dosage: 160 MG LOADING DOSE
     Route: 058
     Dates: start: 20180924, end: 20180924
  6. HUMIRA [Suspect]
     Active Substance: ADALIMUMAB
     Route: 058
     Dates: start: 20190309

REACTIONS (4)
  - Abdominal distension [Recovering/Resolving]
  - Abdominal pain [Recovering/Resolving]
  - Intestinal obstruction [Not Recovered/Not Resolved]
  - Prostatic disorder [Not Recovered/Not Resolved]

NARRATIVE: CASE EVENT DATE: 201901
